FAERS Safety Report 15633228 (Version 1)
Quarter: 2018Q4

REPORT INFORMATION
  Report Type: Spontaneous
  Country: US (occurrence: US)
  Receive Date: 20181119
  Receipt Date: 20181119
  Transmission Date: 20190205
  Serious: Yes (Hospitalization, Other)
  Sender: FDA-Public Use
  Company Number: US-SA-2018SA313017

PATIENT
  Sex: Female
  Weight: 138.79 kg

DRUGS (18)
  1. TROKENDI [Concomitant]
     Active Substance: TOPIRAMATE
     Dosage: 2 DF, QD
     Route: 048
  2. ORENCIA [Suspect]
     Active Substance: ABATACEPT
     Indication: RHEUMATOID ARTHRITIS
     Dosage: UNK
     Dates: start: 201608, end: 201801
  3. DULERA [Concomitant]
     Active Substance: FORMOTEROL FUMARATE DIHYDRATE\MOMETASONE FUROATE
     Route: 055
  4. COZAAR [Concomitant]
     Active Substance: LOSARTAN POTASSIUM
     Dosage: 1 DF, QD
     Route: 048
  5. ALBUTEROL SULFATE. [Concomitant]
     Active Substance: ALBUTEROL SULFATE
     Dosage: UNK
     Route: 055
  6. PREDNISONE. [Concomitant]
     Active Substance: PREDNISONE
     Route: 048
  7. METHOTREXATE. [Suspect]
     Active Substance: METHOTREXATE
     Indication: RHEUMATOID ARTHRITIS
  8. TOPAMAX [Concomitant]
     Active Substance: TOPIRAMATE
     Route: 048
  9. BENTYL [Concomitant]
     Active Substance: DICYCLOMINE HYDROCHLORIDE
     Dosage: 4 DF, QD
     Route: 048
  10. CHLORTHALIDONE. [Concomitant]
     Active Substance: CHLORTHALIDONE
     Dosage: 1 DF, QD
     Route: 048
  11. NYSTATIN. [Concomitant]
     Active Substance: NYSTATIN
     Dosage: 2 DF, QD
  12. XELJANZ XR [Concomitant]
     Active Substance: TOFACITINIB CITRATE
     Dosage: 1 DF, QD
     Route: 048
  13. HUMIRA [Suspect]
     Active Substance: ADALIMUMAB
     Indication: RHEUMATOID ARTHRITIS
     Dosage: UNK
     Route: 058
     Dates: start: 201102, end: 201608
  14. PROTONIX [OMEPRAZOLE] [Concomitant]
     Dosage: 1 DF, QD
     Route: 048
  15. PRAZOSIN HCL [Concomitant]
     Active Substance: PRAZOSIN HYDROCHLORIDE
     Dosage: 3 DF, QD
     Route: 048
  16. KEVZARA [Suspect]
     Active Substance: SARILUMAB
     Indication: RHEUMATOID ARTHRITIS
     Dosage: UNK
     Route: 058
     Dates: start: 201802, end: 201803
  17. VITAMIN D3 [Concomitant]
     Active Substance: CHOLECALCIFEROL
     Dosage: 1 DF, QW
     Route: 048
  18. LYRICA [Concomitant]
     Active Substance: PREGABALIN
     Route: 048

REACTIONS (64)
  - Wheezing [Unknown]
  - Constipation [Unknown]
  - Weight decreased [Unknown]
  - Skin burning sensation [Unknown]
  - Paraesthesia [Unknown]
  - Memory impairment [Unknown]
  - Blood pressure decreased [Unknown]
  - Body mass index increased [Unknown]
  - Muscle spasms [Unknown]
  - Drug effect decreased [Unknown]
  - Haematochezia [Unknown]
  - Cough [Unknown]
  - Eye disorder [Unknown]
  - Flatulence [Unknown]
  - Myalgia [Unknown]
  - Joint swelling [Unknown]
  - Nervousness [Unknown]
  - Gait disturbance [Unknown]
  - Road traffic accident [Unknown]
  - Nausea [Unknown]
  - Asthenia [Unknown]
  - Peripheral swelling [Unknown]
  - Tendonitis [Unknown]
  - Fatigue [Unknown]
  - Joint range of motion decreased [Unknown]
  - Musculoskeletal stiffness [Unknown]
  - Carpal tunnel syndrome [Unknown]
  - Mobility decreased [Unknown]
  - Urinary bladder haemorrhage [Unknown]
  - Monoplegia [Unknown]
  - Dry mouth [Unknown]
  - Dysuria [Unknown]
  - Thinking abnormal [Unknown]
  - Loss of personal independence in daily activities [Unknown]
  - Chest pain [Unknown]
  - Dyspnoea [Unknown]
  - Palpitations [Unknown]
  - Hypoaesthesia [Unknown]
  - Insomnia [Unknown]
  - Dyspepsia [Unknown]
  - Balance disorder [Unknown]
  - Joint stiffness [Unknown]
  - Hysterectomy [Unknown]
  - Dissociative identity disorder [Unknown]
  - Appetite disorder [Unknown]
  - Stomatitis [Unknown]
  - Auditory disorder [Unknown]
  - Diarrhoea [Unknown]
  - Abdominal pain upper [Unknown]
  - Alopecia [Unknown]
  - Headache [Unknown]
  - Anxiety [Unknown]
  - Depressed mood [Unknown]
  - Malaise [Unknown]
  - Rash [Unknown]
  - Sneezing [Unknown]
  - Parosmia [Unknown]
  - Dysgeusia [Unknown]
  - Lymphadenopathy [Unknown]
  - Skin haemorrhage [Unknown]
  - Dizziness [Unknown]
  - Depression [Unknown]
  - Arthralgia [Unknown]
  - Faeces discoloured [Unknown]

NARRATIVE: CASE EVENT DATE: 201809
